FAERS Safety Report 10846384 (Version 1)
Quarter: 2015Q1

REPORT INFORMATION
  Report Type: Report from Study
  Country: US (occurrence: US)
  Receive Date: 20150220
  Receipt Date: 20150220
  Transmission Date: 20150721
  Serious: Yes (Hospitalization)
  Sender: FDA-Public Use
  Company Number: US-BAYER-2012-088961

PATIENT
  Age: 77 Year
  Sex: Male
  Weight: 97.1 kg

DRUGS (2)
  1. REGORAFENIB [Suspect]
     Active Substance: REGORAFENIB
     Indication: COLORECTAL CANCER METASTATIC
     Dosage: 40 MG, QID
     Route: 048
     Dates: start: 20120801, end: 20120821
  2. COUMADIN [Concomitant]
     Active Substance: WARFARIN SODIUM
     Indication: DEEP VEIN THROMBOSIS
     Dosage: DAILY DOSE: 5 MG
     Route: 048
     Dates: start: 20120424

REACTIONS (2)
  - Hyperprothrombinaemia [Recovered/Resolved]
  - Hyperprothrombinaemia [Recovered/Resolved]

NARRATIVE: CASE EVENT DATE: 20120815
